FAERS Safety Report 8311225-7 (Version None)
Quarter: 2012Q2

REPORT INFORMATION
  Report Type: 
  Country: None (occurrence: None)
  Receive Date: 20120423
  Receipt Date: 20120417
  Transmission Date: 20120825
  Serious: Yes (Death, Life-Threatening, Hospitalization, Disabling)
  Sender: FDA-Public Use
  Company Number: 2012SP018692

PATIENT
  Age: 51 Year
  Sex: Female
  Weight: 78.0187 kg

DRUGS (2)
  1. NUVARING [Suspect]
     Indication: CONTRACEPTION
     Dosage: 1 DF,,VAG
     Route: 067
  2. BENICAR [Concomitant]

REACTIONS (2)
  - SUDDEN DEATH [None]
  - PULMONARY EMBOLISM [None]
